FAERS Safety Report 7825962-1 (Version None)
Quarter: 2011Q4

REPORT INFORMATION
  Report Type: 
  Country: None (occurrence: None)
  Receive Date: 20111019
  Receipt Date: 20111004
  Transmission Date: 20120403
  Serious: Yes (Other)
  Sender: FDA-Public Use
  Company Number: CA-ROCHE-1003860

PATIENT
  Sex: Female

DRUGS (4)
  1. METFORMIN HCL [Concomitant]
  2. XOLAIR [Suspect]
     Indication: ASTHMA
     Route: 058
     Dates: start: 20080926
  3. SYMBICORT [Concomitant]
  4. BRICANYL [Concomitant]

REACTIONS (5)
  - CONTUSION [None]
  - DIARRHOEA [None]
  - ABDOMINAL PAIN [None]
  - INFLAMMATION [None]
  - THROMBOSIS [None]
